FAERS Safety Report 6932876-8 (Version None)
Quarter: 2010Q3

REPORT INFORMATION
  Report Type: 
  Country: None (occurrence: None)
  Receive Date: 20100813
  Receipt Date: 20100505
  Transmission Date: 20110219
  Serious: No
  Sender: FDA-Public Use
  Company Number: 1000013631

PATIENT
  Age: 49 Year
  Sex: Female

DRUGS (12)
  1. SAVELLA [Suspect]
     Indication: FIBROMYALGIA
     Dosage: 12.5 MG (12.5 MG, 1 IN 1 D), ORAL, 25 MG (12.5 MG, 2  IN 1 D), ORAL, 50 MG (25 MG, 2 IN 1 D), ORAL
     Route: 048
     Dates: start: 20100420, end: 20100420
  2. SAVELLA [Suspect]
     Indication: FIBROMYALGIA
     Dosage: 12.5 MG (12.5 MG, 1 IN 1 D), ORAL, 25 MG (12.5 MG, 2  IN 1 D), ORAL, 50 MG (25 MG, 2 IN 1 D), ORAL
     Route: 048
     Dates: start: 20100421, end: 20100422
  3. SAVELLA [Suspect]
     Indication: FIBROMYALGIA
     Dosage: 12.5 MG (12.5 MG, 1 IN 1 D), ORAL, 25 MG (12.5 MG, 2  IN 1 D), ORAL, 50 MG (25 MG, 2 IN 1 D), ORAL
     Route: 048
     Dates: start: 20100423, end: 20100426
  4. SAVELLA [Suspect]
     Indication: FIBROMYALGIA
     Dosage: 100 MG (50 MG, 2 IN 1 D), ORAL, 50 MG, 1 IN 1 D, ORAL
     Route: 048
     Dates: start: 20100427, end: 20100503
  5. SAVELLA [Suspect]
     Indication: FIBROMYALGIA
     Dosage: 100 MG (50 MG, 2 IN 1 D), ORAL, 50 MG, 1 IN 1 D, ORAL
     Route: 048
     Dates: start: 20100504
  6. PERCOCET [Concomitant]
  7. LIPITOR [Concomitant]
  8. NEXIUM [Concomitant]
  9. ALLEGRA D 24 HOUR [Concomitant]
  10. ASPIRIN [Concomitant]
  11. VITAMINS [Concomitant]
  12. FISH OIL [Concomitant]

REACTIONS (2)
  - FLUSHING [None]
  - HYPERHIDROSIS [None]
